FAERS Safety Report 16934610 (Version 2)
Quarter: 2019Q4

REPORT INFORMATION
  Report Type: Report from Study
  Country: US (occurrence: US)
  Receive Date: 20191018
  Receipt Date: 20191204
  Transmission Date: 20200122
  Serious: No
  Sender: FDA-Public Use
  Company Number: US-ALNYLAM PHARMACEUTICALS, INC.-ALN-2019-000738

PATIENT
  Sex: Female

DRUGS (1)
  1. ONPATTRO [Suspect]
     Active Substance: PATISIRAN SODIUM
     Indication: HEREDITARY NEUROPATHIC AMYLOIDOSIS
     Dosage: UNK, Q3W
     Route: 042
     Dates: start: 20190924

REACTIONS (9)
  - Headache [Unknown]
  - Infusion related reaction [Unknown]
  - Physiotherapy [Unknown]
  - Somnolence [Unknown]
  - Precancerous lesion excision [Unknown]
  - Pain in extremity [Unknown]
  - Palliative care [Unknown]
  - Malaise [Unknown]
  - Influenza like illness [Unknown]
